FAERS Safety Report 20871326 (Version 2)
Quarter: 2022Q2

REPORT INFORMATION
  Report Type: Spontaneous
  Country: GB (occurrence: GB)
  Receive Date: 20220525
  Receipt Date: 20220630
  Transmission Date: 20220720
  Serious: Yes (Death, Hospitalization, Other)
  Sender: FDA-Public Use
  Company Number: GB-MYLANLABS-2022M1038998

PATIENT
  Sex: Male

DRUGS (4)
  1. CLOZARIL [Suspect]
     Active Substance: CLOZAPINE
     Indication: Schizophrenia
     Dosage: UNK
     Route: 048
     Dates: start: 20010701
  2. CLOZARIL [Suspect]
     Active Substance: CLOZAPINE
     Dosage: 400 MILLIGRAM, QD (150MG MANE; 250MG NOCTE)
     Route: 048
     Dates: end: 20220222
  3. SERTRALINE [Concomitant]
     Active Substance: SERTRALINE HYDROCHLORIDE
     Dosage: 150 MILLIGRAM, QD
     Route: 065
  4. CLONAZEPAM [Concomitant]
     Active Substance: CLONAZEPAM
     Dosage: 1 MILLIGRAM, BID
     Route: 065

REACTIONS (8)
  - Death [Fatal]
  - Pyrexia [Unknown]
  - Unresponsive to stimuli [Unknown]
  - Abnormal behaviour [Unknown]
  - Vomiting [Unknown]
  - Dyspnoea [Unknown]
  - Cyanosis [Unknown]
  - Dysphagia [Unknown]

NARRATIVE: CASE EVENT DATE: 20220501
